FAERS Safety Report 5416704-8 (Version None)
Quarter: 2007Q3

REPORT INFORMATION
  Report Type: 
  Country: None (occurrence: None)
  Receive Date: 20070816
  Receipt Date: 20070814
  Transmission Date: 20080115
  Serious: Yes (Hospitalization)
  Sender: FDA-Public Use
  Company Number: A0628126A

PATIENT
  Age: 46 Year
  Sex: Female

DRUGS (6)
  1. WELLBUTRIN XL [Suspect]
     Indication: BIPOLAR DISORDER
     Dosage: 300MG PER DAY
     Route: 048
     Dates: start: 20061116
  2. LAMICTAL [Suspect]
     Indication: DRUG USE FOR UNKNOWN INDICATION
     Dosage: 150MG PER DAY
     Route: 048
  3. SEROQUEL [Concomitant]
  4. KLONOPIN [Concomitant]
  5. TOPROL-XL [Concomitant]
  6. LIPITOR [Concomitant]

REACTIONS (6)
  - ANORGASMIA [None]
  - CHEST PAIN [None]
  - DISTURBANCE IN SEXUAL AROUSAL [None]
  - SUICIDAL IDEATION [None]
  - VULVOVAGINAL DRYNESS [None]
  - WEIGHT INCREASED [None]
